FAERS Safety Report 18190437 (Version 1)
Quarter: 2020Q3

REPORT INFORMATION
  Report Type: Spontaneous
  Country: US (occurrence: US)
  Receive Date: 20200824
  Receipt Date: 20200824
  Transmission Date: 20201103
  Serious: No
  Sender: FDA-Public Use
  Company Number: US-ENDO PHARMACEUTICALS INC-2019-107626

PATIENT
  Sex: Female

DRUGS (7)
  1. CYCLOBENZAPRINE. [Concomitant]
     Active Substance: CYCLOBENZAPRINE
     Indication: PAIN
     Dosage: 10 MG, TID
     Route: 065
  2. SUCRALFATE. [Concomitant]
     Active Substance: SUCRALFATE
     Indication: GASTROOESOPHAGEAL REFLUX DISEASE
     Dosage: 1 G, UP TO THREE TIMES A DAY, AS NEEDED USUALLY TAKE 2 TIMES A DAY
     Route: 065
  3. ROPINIROLE. [Concomitant]
     Active Substance: ROPINIROLE
     Indication: RESTLESS LEGS SYNDROME
     Dosage: 1 MG, TID
     Route: 065
  4. LYRICA [Concomitant]
     Active Substance: PREGABALIN
     Indication: NEUROPATHY PERIPHERAL
     Dosage: 50 MG, DAILY
     Route: 065
  5. OXYCODONE HYDROCHLORIDE, ACETAMINOPHEN [Suspect]
     Active Substance: ACETAMINOPHEN\OXYCODONE HYDROCHLORIDE
     Indication: PAIN
     Dosage: 10 MG / 325 UP TO THREE TIMES A DAY, AS NEEDED, USUALLY TAKE TWICE BUT TAKES EVERYDAY.
     Route: 065
     Dates: start: 2017
  6. DULOXETINE. [Concomitant]
     Active Substance: DULOXETINE
     Indication: NEUROPATHY PERIPHERAL
     Dosage: 30 MG, BID (1 IN MORNING AND 1 AT NIGHT BEFORE BED)
     Route: 065
     Dates: start: 201904
  7. PANTOPRAZOLE [Concomitant]
     Active Substance: PANTOPRAZOLE
     Indication: GASTROOESOPHAGEAL REFLUX DISEASE
     Dosage: 40 MG, DAILY IN THE MORNING
     Route: 065

REACTIONS (1)
  - Drug ineffective [Not Recovered/Not Resolved]
